FAERS Safety Report 6431293-7 (Version None)
Quarter: 2009Q4

REPORT INFORMATION
  Report Type: 
  Country: None (occurrence: None)
  Receive Date: 20091105
  Receipt Date: 20091105
  Transmission Date: 20100525
  Serious: Yes (Hospitalization)
  Sender: FDA-Public Use
  Company Number: None

PATIENT
  Age: 14 Year
  Sex: Male
  Weight: 68.9 kg

DRUGS (1)
  1. TAMIFLU [Suspect]
     Indication: INFLUENZA
     Dosage: UNKNOWN X 1 DOSE
     Dates: start: 20090923

REACTIONS (4)
  - DIZZINESS [None]
  - DYSPNOEA [None]
  - PANIC DISORDER [None]
  - PRURITUS [None]
